FAERS Safety Report 9919010 (Version 2)
Quarter: 2014Q1

REPORT INFORMATION
  Report Type: Spontaneous
  Country: US (occurrence: US)
  Receive Date: 20140224
  Receipt Date: 20140224
  Transmission Date: 20141002
  Serious: No
  Sender: FDA-Public Use
  Company Number: US-BRISTOL-MYERS SQUIBB COMPANY-17448119

PATIENT
  Age: 63 Year
  Sex: Female

DRUGS (3)
  1. GLUCOPHAGE TABS 500 MG [Suspect]
  2. MULTIVITAMIN [Concomitant]
  3. ASPIRIN [Concomitant]

REACTIONS (1)
  - Blood glucose increased [Unknown]
